FAERS Safety Report 6456710-8 (Version None)
Quarter: 2009Q4

REPORT INFORMATION
  Report Type: 
  Country: None (occurrence: None)
  Receive Date: 20091125
  Receipt Date: 20091118
  Transmission Date: 20100525
  Serious: Yes (Hospitalization)
  Sender: FDA-Public Use
  Company Number: JP-BAYER-200912232BYL

PATIENT
  Age: 78 Year
  Sex: Male
  Weight: 55 kg

DRUGS (5)
  1. NEXAVAR [Suspect]
     Indication: HEPATIC NEOPLASM MALIGNANT
     Dosage: TOTAL DAILY DOSE: 800 MG  UNIT DOSE: 200 MG
     Route: 048
     Dates: start: 20090624, end: 20090630
  2. HYPEN [Concomitant]
     Dosage: UNIT DOSE: 200 MG
     Route: 048
  3. TAKEPRON [Concomitant]
     Dosage: UNIT DOSE: 15 MG
     Route: 048
  4. ALDACTONE [Concomitant]
     Dosage: UNIT DOSE: 25 MG
     Route: 048
  5. GASTROM [Concomitant]
     Dosage: UNIT DOSE: 1.5 G
     Route: 048

REACTIONS (2)
  - HYPERTENSION [None]
  - LIVER DISORDER [None]
